FAERS Safety Report 6689137-4 (Version None)
Quarter: 2010Q2

REPORT INFORMATION
  Report Type: 
  Country: None (occurrence: None)
  Receive Date: 20100415
  Receipt Date: 20100330
  Transmission Date: 20101027
  Serious: Yes (Hospitalization)
  Sender: FDA-Public Use
  Company Number: B0646431A

PATIENT

DRUGS (2)
  1. PROPRANOLOL HCL [Suspect]
     Dosage: 2 GRAMS ORAL
     Route: 048
  2. ETHANOL (FORMULATION UNKNOWN) (ALCOHOL) [Suspect]
     Dosage: ORAL
     Route: 048

REACTIONS (6)
  - BLOOD BICARBONATE DECREASED [None]
  - CARDIAC ARREST [None]
  - CARDIOVASCULAR INSUFFICIENCY [None]
  - DRUG TOXICITY [None]
  - HEART RATE DECREASED [None]
  - OVERDOSE [None]
